FAERS Safety Report 22840702 (Version 3)
Quarter: 2023Q4

REPORT INFORMATION
  Report Type: Report from Study
  Country: US (occurrence: US)
  Receive Date: 20230819
  Receipt Date: 20231020
  Transmission Date: 20240109
  Serious: No
  Sender: FDA-Public Use
  Company Number: US-002147023-NVSC2023US178173

PATIENT
  Sex: Female

DRUGS (1)
  1. LEQVIO [Suspect]
     Active Substance: INCLISIRAN SODIUM
     Indication: Product used for unknown indication
     Dosage: UNK
     Route: 058
     Dates: start: 20230606

REACTIONS (6)
  - Dyspnoea [Unknown]
  - Sleep disorder [Unknown]
  - Diarrhoea [Unknown]
  - Pain [Unknown]
  - Myalgia [Unknown]
  - Musculoskeletal stiffness [Unknown]
